FAERS Safety Report 22601199 (Version 1)
Quarter: 2023Q2

REPORT INFORMATION
  Report Type: Spontaneous
  Country: US (occurrence: US)
  Receive Date: 20230614
  Receipt Date: 20230614
  Transmission Date: 20230721
  Serious: No
  Sender: FDA-Public Use
  Company Number: US-BRISTOL-MYERS SQUIBB COMPANY-2023-083805

PATIENT
  Age: 58 Year
  Sex: Female

DRUGS (1)
  1. LENALIDOMIDE [Suspect]
     Active Substance: LENALIDOMIDE
     Indication: Micturition urgency
     Dosage: DAILY FOR 2 WEEKS ON, 1 WEEK OFF
     Route: 048

REACTIONS (2)
  - Urticaria [Not Recovered/Not Resolved]
  - Off label use [Unknown]
